FAERS Safety Report 18904442 (Version 7)
Quarter: 2021Q3

REPORT INFORMATION
  Report Type: Report from Study
  Country: CA (occurrence: CA)
  Receive Date: 20210217
  Receipt Date: 20210922
  Transmission Date: 20211014
  Serious: Yes (Hospitalization, Other)
  Sender: FDA-Public Use
  Company Number: NVSC2021CA005195

PATIENT
  Age: 78 Year
  Sex: Male

DRUGS (6)
  1. SANDOSTATIN LAR DEPOT [Suspect]
     Active Substance: OCTREOTIDE ACETATE
     Indication: CARCINOID TUMOUR
     Dosage: 20 MG, Q4W (VIAL)
     Route: 030
     Dates: start: 20200711
  2. INSULIN [Concomitant]
     Active Substance: INSULIN NOS
     Indication: PRODUCT USED FOR UNKNOWN INDICATION
     Dosage: UNK
     Route: 058
  3. OCTREOTIDE. [Concomitant]
     Active Substance: OCTREOTIDE
     Indication: CARCINOID TUMOUR
     Dosage: 1 UG, BID (FOR 4 WEEKS)
     Route: 058
     Dates: start: 20200629
  4. METOPROLOL TARTRATE. [Concomitant]
     Active Substance: METOPROLOL TARTRATE
     Indication: PRODUCT USED FOR UNKNOWN INDICATION
     Dosage: 1 DF, BID
     Route: 048
  5. SANDOSTATIN LAR DEPOT [Suspect]
     Active Substance: OCTREOTIDE ACETATE
  6. SANDOSTATIN LAR DEPOT [Suspect]
     Active Substance: OCTREOTIDE ACETATE

REACTIONS (13)
  - Dizziness [Unknown]
  - Blood pressure increased [Unknown]
  - Food poisoning [Unknown]
  - Pallor [Recovering/Resolving]
  - Blood urine present [Unknown]
  - Nausea [Recovering/Resolving]
  - Kidney infection [Unknown]
  - Asthenia [Unknown]
  - Malaise [Unknown]
  - Heart rate decreased [Unknown]
  - Hyperhidrosis [Recovering/Resolving]
  - Blood pressure systolic decreased [Unknown]
  - Vomiting [Recovering/Resolving]

NARRATIVE: CASE EVENT DATE: 20210201
